FAERS Safety Report 6857831-8 (Version None)
Quarter: 2010Q3

REPORT INFORMATION
  Report Type: 
  Country: None (occurrence: None)
  Receive Date: 20100719
  Receipt Date: 20080206
  Transmission Date: 20110219
  Serious: No
  Sender: FDA-Public Use
  Company Number: US-PFIZER INC-2008009798

PATIENT
  Sex: Female

DRUGS (1)
  1. CHANTIX [Suspect]

REACTIONS (6)
  - ABNORMAL DREAMS [None]
  - DIARRHOEA [None]
  - DRUG INEFFECTIVE [None]
  - FEELING JITTERY [None]
  - FEELING OF BODY TEMPERATURE CHANGE [None]
  - MALAISE [None]
